FAERS Safety Report 8429804-5 (Version None)
Quarter: 2012Q2

REPORT INFORMATION
  Report Type: 
  Country: None (occurrence: None)
  Receive Date: 20120518
  Receipt Date: 20120507
  Transmission Date: 20120825
  Serious: Yes (Hospitalization, Other)
  Sender: FDA-Public Use
  Company Number: 2012PROUSA01362

PATIENT
  Age: 58 Year
  Sex: Male
  Weight: 118.4 kg

DRUGS (3)
  1. SYNTHROID [Concomitant]
  2. PROVENGE [Suspect]
     Indication: PROSTATE CANCER METASTATIC
     Dosage: 250 ML, SINGLE, INTRAVENOUS
     Route: 042
     Dates: start: 20120419, end: 20120419
  3. WARFARIN SODIUM [Concomitant]

REACTIONS (4)
  - PULMONARY EMBOLISM [None]
  - HEPARIN-INDUCED THROMBOCYTOPENIA [None]
  - VENA CAVA THROMBOSIS [None]
  - ATRIAL FIBRILLATION [None]
